FAERS Safety Report 19199326 (Version 3)
Quarter: 2023Q4

REPORT INFORMATION
  Report Type: Report from Study
  Country: US (occurrence: US)
  Receive Date: 20210430
  Receipt Date: 20231115
  Transmission Date: 20240110
  Serious: Yes (Death, Other)
  Sender: FDA-Public Use
  Company Number: US-ACADIA PHARMACEUTICALS INC.-ACA-2021-PIM-001317

PATIENT
  Age: 95 Year
  Sex: Male

DRUGS (1)
  1. NUPLAZID [Suspect]
     Active Substance: PIMAVANSERIN TARTRATE
     Indication: Parkinson^s disease
     Dosage: 34 MILLIGRAM, QD
     Route: 048
     Dates: start: 202102

REACTIONS (5)
  - Death [Fatal]
  - Loss of consciousness [Unknown]
  - Heart rate decreased [Unknown]
  - Orthostatic hypotension [Unknown]
  - Constipation [Unknown]

NARRATIVE: CASE EVENT DATE: 20230914
